FAERS Safety Report 9135736 (Version 1)
Quarter: 2013Q1

REPORT INFORMATION
  Report Type: Spontaneous
  Country: FR (occurrence: FR)
  Receive Date: 20130304
  Receipt Date: 20130304
  Transmission Date: 20140127
  Serious: Yes (Disabling)
  Sender: FDA-Public Use
  Company Number: FR-JNJFOC-20130208871

PATIENT
  Age: 24 Year
  Sex: Female

DRUGS (1)
  1. CILEST [Suspect]
     Indication: CONTRACEPTION
     Route: 048
     Dates: start: 19890621, end: 19890629

REACTIONS (2)
  - Ischaemic stroke [Recovered/Resolved with Sequelae]
  - Complicated migraine [Not Recovered/Not Resolved]
